FAERS Safety Report 4509914-5 (Version None)
Quarter: 2004Q4

REPORT INFORMATION
  Report Type: 
  Country: None (occurrence: None)
  Receive Date: 20041124
  Receipt Date: 20041115
  Transmission Date: 20050328
  Serious: Yes (Hospitalization, Other)
  Sender: FDA-Public Use
  Company Number: GBWYE211418NOV04

PATIENT
  Age: 57 Year

DRUGS (4)
  1. ENBREL [Suspect]
     Indication: RHEUMATOID ARTHRITIS
     Dosage: 25MG FREQUENCY UNSPECIFIED
     Dates: start: 20041001
  2. TRIMETHOPRIM [Concomitant]
     Dosage: 200MG FREQUENCY UNSPECIFIED
  3. RANITIDINE [Concomitant]
  4. CODEINE PHOSPHATE [Concomitant]
     Dosage: UNKNOWN

REACTIONS (6)
  - DEAFNESS [None]
  - DECREASED APPETITE [None]
  - DIARRHOEA [None]
  - LYMPHOCYTE COUNT DECREASED [None]
  - MALAISE [None]
  - PYREXIA [None]
